FAERS Safety Report 6812307-9 (Version None)
Quarter: 2010Q3

REPORT INFORMATION
  Report Type: 
  Country: None (occurrence: None)
  Receive Date: 20100701
  Receipt Date: 20100624
  Transmission Date: 20110219
  Serious: Yes (Other)
  Sender: FDA-Public Use
  Company Number: CN-WYE-H15922410

PATIENT
  Sex: Female

DRUGS (3)
  1. EFFEXOR XR [Suspect]
     Indication: SOMATISATION DISORDER
     Dosage: 37.5-225 MG DAILY
     Route: 048
     Dates: start: 20100612, end: 20100618
  2. QUETIAPINE [Concomitant]
     Indication: SOMATISATION DISORDER
     Dosage: 50-100 MG DAILY
     Dates: start: 20100612
  3. CLONAZEPAM [Concomitant]
     Indication: SOMATISATION DISORDER
     Dates: start: 20100612

REACTIONS (6)
  - BLOOD FIBRINOGEN DECREASED [None]
  - ECCHYMOSIS [None]
  - FALL [None]
  - HAEMOGLOBIN DECREASED [None]
  - PETECHIAE [None]
  - WHITE BLOOD CELL COUNT INCREASED [None]
